FAERS Safety Report 19304781 (Version 2)
Quarter: 2021Q2

REPORT INFORMATION
  Report Type: Spontaneous
  Country: CA (occurrence: CA)
  Receive Date: 20210525
  Receipt Date: 20210528
  Transmission Date: 20210717
  Serious: Yes (Other)
  Sender: FDA-Public Use
  Company Number: CA-ALLERGAN-2101603US

PATIENT
  Sex: Female
  Weight: 58.96 kg

DRUGS (1)
  1. LATISSE [Suspect]
     Active Substance: BIMATOPROST
     Indication: EYELASH CHANGES
     Dosage: 1 DF, QD
     Route: 061

REACTIONS (6)
  - Swelling face [Recovered/Resolved]
  - Ocular discomfort [Recovered/Resolved]
  - Skin irritation [Recovered/Resolved]
  - Pruritus [Recovered/Resolved]
  - Eyelid disorder [Recovered/Resolved]
  - Skin discolouration [Recovered/Resolved]
